FAERS Safety Report 7491099-7 (Version None)
Quarter: 2011Q2

REPORT INFORMATION
  Report Type: 
  Country: None (occurrence: None)
  Receive Date: 20110519
  Receipt Date: 20110509
  Transmission Date: 20111010
  Serious: Yes (Other)
  Sender: FDA-Public Use
  Company Number: DE-ROCHE-776369

PATIENT
  Sex: Female
  Weight: 77 kg

DRUGS (8)
  1. BISOPROLOL FUMARATE [Concomitant]
  2. OPIPRAMOL [Concomitant]
     Dates: start: 20060101
  3. RAMIPRIL [Concomitant]
     Dates: start: 20070101
  4. OPIPRAMOL [Concomitant]
  5. BEVACIZUMAB [Suspect]
     Indication: BREAST CANCER
     Dosage: DOSING: DAY 1 OF A 3 WEEK CYCLE (ROUTE AND DOSE A/P PROTOCOL), INTERRUPTED
     Route: 042
     Dates: start: 20100325
  6. CAPECITABINE [Suspect]
     Indication: BREAST CANCER
     Dosage: DOSING DAY 1-14 OF A 3 WEEK CYCLE (ROUTE AND DOSE A/P PROTOCOL), INTERRUPTED
     Route: 048
     Dates: start: 20100326
  7. BISOPROLOL FUMARATE [Concomitant]
     Dates: start: 20040101
  8. OPTOVIT [Concomitant]

REACTIONS (1)
  - LEUKOCYTOCLASTIC VASCULITIS [None]
